FAERS Safety Report 5620125-2 (Version None)
Quarter: 2008Q1

REPORT INFORMATION
  Report Type: 
  Country: None (occurrence: None)
  Receive Date: 20080208
  Receipt Date: 20080129
  Transmission Date: 20080703
  Serious: Yes (Hospitalization, Other)
  Sender: FDA-Public Use
  Company Number: FR-ROCHE-537482

PATIENT
  Age: 17 Year
  Sex: Female
  Weight: 55 kg

DRUGS (2)
  1. ROACCUTANE [Suspect]
     Indication: ACNE
     Route: 048
     Dates: start: 20071105, end: 20071222
  2. MERCILON [Interacting]
     Indication: CONTRACEPTION
     Dosage: DRUG NAME REPORTED: MERCILLON
     Route: 048
     Dates: start: 20071101, end: 20071201

REACTIONS (4)
  - DRUG INTERACTION [None]
  - HEADACHE [None]
  - THROMBOPHLEBITIS [None]
  - VISION BLURRED [None]
